FAERS Safety Report 8893672 (Version 1)
Quarter: 2012Q4

REPORT INFORMATION
  Report Type: 
  Country: US (occurrence: US)
  Receive Date: 20121107
  Receipt Date: 20121107
  Transmission Date: 20130627
  Serious: No
  Sender: FDA-Public Use
  Company Number: US-AMGEN-USASP2011060507

PATIENT
  Age: 49 Year
  Sex: Female
  Weight: 175 kg

DRUGS (4)
  1. ENBREL [Suspect]
     Indication: PRODUCT USED FOR UNKNOWN INDICATION
     Dosage: 50 mg, qwk
     Route: 048
  2. OMEPRAZOLE [Concomitant]
     Dosage: 20 mg, UNK
     Route: 048
  3. ASA [Concomitant]
     Dosage: 81 mg, UNK
     Route: 048
  4. MULTIVITAMIN [Concomitant]
     Route: 048

REACTIONS (4)
  - Myalgia [Unknown]
  - Musculoskeletal stiffness [Unknown]
  - Pain in extremity [Unknown]
  - Fatigue [Unknown]
